FAERS Safety Report 6032820-4 (Version None)
Quarter: 2009Q1

REPORT INFORMATION
  Report Type: 
  Country: None (occurrence: None)
  Receive Date: 20090107
  Receipt Date: 20090107
  Transmission Date: 20090719
  Serious: Yes (Hospitalization)
  Sender: FDA-Public Use
  Company Number: None

PATIENT
  Age: 11 Year
  Sex: Male
  Weight: 40.3701 kg

DRUGS (3)
  1. OXCARBAZEPINE 150 MG SUN P [Suspect]
     Indication: IMPULSIVE BEHAVIOUR
     Dosage: 1 TABLET 2/DAY PO
     Route: 048
     Dates: start: 20081112, end: 20081219
  2. FLUVOXAMINE MALEATE 50 MG APTX2 [Suspect]
     Indication: ANXIETY
     Dosage: 1 TABLET 1/DAY PO
     Route: 048
     Dates: start: 20081112, end: 20081219
  3. CONCERTA [Concomitant]

REACTIONS (8)
  - ABNORMAL BEHAVIOUR [None]
  - AGITATION [None]
  - DYSKINESIA [None]
  - HALLUCINATION, AUDITORY [None]
  - LEARNING DISORDER [None]
  - SCRATCH [None]
  - SUICIDAL IDEATION [None]
  - TIC [None]
